FAERS Safety Report 9096371 (Version 1)
Quarter: 2013Q1

REPORT INFORMATION
  Report Type: Spontaneous
  Country: FR (occurrence: FR)
  Receive Date: 20130207
  Receipt Date: 20130207
  Transmission Date: 20140127
  Serious: Yes (Hospitalization, Disabling)
  Sender: FDA-Public Use
  Company Number: FR-PFIZER INC-2013049266

PATIENT
  Age: 69 Year
  Sex: Male

DRUGS (6)
  1. ATENOLOL [Suspect]
     Dosage: 0.5 DF, 1X/DAY
     Route: 048
  2. TAHOR [Suspect]
     Dosage: 10 MG, 1X/DAY
     Route: 048
  3. ZESTRIL [Suspect]
     Dosage: 20 MG, 1X/DAY
     Route: 048
  4. GLUCOPHAGE [Suspect]
     Dosage: 1 DF, 3X/DAY
     Route: 048
  5. DOLIPRANE [Suspect]
     Dosage: 500 MG, TWO TABELTS FOUR TIMES PER DAY AS REQUIRED
     Route: 048
  6. VAXIGRIP [Suspect]
     Dosage: 1 DF, SINGLE
     Route: 030
     Dates: start: 201111, end: 201111

REACTIONS (1)
  - Amyotrophic lateral sclerosis [Not Recovered/Not Resolved]
